FAERS Safety Report 22342591 (Version 1)
Quarter: 2023Q2

REPORT INFORMATION
  Report Type: Spontaneous
  Country: GB (occurrence: GB)
  Receive Date: 20230519
  Receipt Date: 20230519
  Transmission Date: 20230721
  Serious: Yes (Disabling, Other)
  Sender: FDA-Public Use
  Company Number: GB-MHRA-MED-202305051641117140-DSJGN

PATIENT

DRUGS (1)
  1. LENALIDOMIDE [Suspect]
     Active Substance: LENALIDOMIDE
     Indication: Product used for unknown indication
     Dosage: UNK
     Route: 065

REACTIONS (1)
  - Metastatic malignant melanoma [Not Recovered/Not Resolved]

NARRATIVE: CASE EVENT DATE: 20230501
